FAERS Safety Report 5320563-1 (Version None)
Quarter: 2007Q1

REPORT INFORMATION
  Report Type: 
  Country: None (occurrence: None)
  Receive Date: 20070203
  Receipt Date: 20070103
  Transmission Date: 20070707
  Serious: Yes (Other)
  Sender: FDA-Public Use
  Company Number: 33409

PATIENT
  Age: 80 Year
  Sex: Female
  Weight: 48.0813 kg

DRUGS (8)
  1. CARBOPLATIN [Suspect]
     Indication: OVARIAN CANCER
     Dosage: 350MG/IV/Q3WKS
     Route: 042
     Dates: start: 20061030
  2. CARBOPLATIN [Suspect]
     Indication: OVARIAN CANCER
     Dosage: 350MG/IV/Q3WKS
     Route: 042
     Dates: start: 20061121
  3. CARBOPLATIN [Suspect]
     Indication: OVARIAN CANCER
     Dosage: 350 MG/IV/Q3WKS
     Route: 042
     Dates: start: 20061030
  4. CARBOPLATIN [Suspect]
     Indication: OVARIAN CANCER
     Dosage: 350 MG/IV/Q3WKS
     Route: 042
     Dates: start: 20061121
  5. SYNTHROID [Concomitant]
  6. ACIPHEX [Concomitant]
  7. TAXOTERE [Concomitant]
  8. DECADRON [Concomitant]

REACTIONS (3)
  - HYPOTENSION [None]
  - NAUSEA [None]
  - PRURITUS [None]
